FAERS Safety Report 20951081 (Version 1)
Quarter: 2022Q2

REPORT INFORMATION
  Report Type: Spontaneous
  Country: US (occurrence: None)
  Receive Date: 20220610
  Receipt Date: 20220610
  Transmission Date: 20220720
  Serious: No
  Sender: FDA-Public Use
  Company Number: None

PATIENT
  Age: 50 Year
  Sex: Female
  Weight: 62.1 kg

DRUGS (7)
  1. HUMIRA [Suspect]
     Active Substance: ADALIMUMAB
     Indication: Rheumatoid arthritis
     Dosage: OTHER QUANTITY : 1 INJECTION(S);?OTHER FREQUENCY : BIWEEKLY;?OTHER ROUTE : INJECTION PEN;?
     Route: 050
     Dates: start: 20220523, end: 20220606
  2. Leflunomide 20mg daily [Concomitant]
  3. VALACYCLOVIR [Concomitant]
     Active Substance: VALACYCLOVIR HYDROCHLORIDE
  4. VYFEMLA [Concomitant]
     Active Substance: ETHINYL ESTRADIOL\NORETHINDRONE
  5. ZYRTEC [Concomitant]
     Active Substance: CETIRIZINE HYDROCHLORIDE
  6. Probiotic Gummies by Olly [Concomitant]
  7. Flonase gentle [Concomitant]

REACTIONS (6)
  - Rash macular [None]
  - Skin discolouration [None]
  - Urticaria [None]
  - Injection site pruritus [None]
  - Injection site erythema [None]
  - Injection site swelling [None]

NARRATIVE: CASE EVENT DATE: 20220607
